FAERS Safety Report 24751596 (Version 1)
Quarter: 2024Q4

REPORT INFORMATION
  Report Type: Report from Study
  Country: US (occurrence: US)
  Receive Date: 20241219
  Receipt Date: 20241219
  Transmission Date: 20250114
  Serious: Yes (Other)
  Sender: ABBVIE
  Company Number: US-ABBVIE-6047892

PATIENT
  Age: 66 Year
  Sex: Female

DRUGS (1)
  1. RINVOQ [Suspect]
     Active Substance: UPADACITINIB
     Indication: Rheumatoid arthritis
     Route: 048
     Dates: start: 20210501

REACTIONS (9)
  - Neck surgery [Unknown]
  - Lymphadenopathy [Unknown]
  - Pain in extremity [Not Recovered/Not Resolved]
  - Sinusitis [Unknown]
  - Precancerous condition [Unknown]
  - Loss of personal independence in daily activities [Unknown]
  - Unevaluable event [Unknown]
  - Protein total abnormal [Unknown]
  - Musculoskeletal disorder [Not Recovered/Not Resolved]

NARRATIVE: CASE EVENT DATE: 20240601
